FAERS Safety Report 11175633 (Version 1)
Quarter: 2015Q2

REPORT INFORMATION
  Report Type: Spontaneous
  Country: IT (occurrence: IT)
  Receive Date: 20150609
  Receipt Date: 20150609
  Transmission Date: 20150821
  Serious: Yes (Other)
  Sender: FDA-Public Use
  Company Number: IT-GLAXOSMITHKLINE-IT2015GSK076824

PATIENT
  Age: 51 Year
  Sex: Male

DRUGS (8)
  1. ASPIRIN. [Concomitant]
     Active Substance: ASPIRIN
     Indication: ANTIPLATELET THERAPY
     Dosage: UNK
     Route: 065
  2. TICAGRELOR [Interacting]
     Active Substance: TICAGRELOR
     Indication: ANTIPLATELET THERAPY
     Dosage: 180 MG, UNK
     Route: 065
  3. IVABRADINE [Interacting]
     Active Substance: IVABRADINE
     Indication: ACUTE MYOCARDIAL INFARCTION
     Dosage: 5 MG, BID
     Route: 065
  4. ATORVASTATIN [Concomitant]
     Active Substance: ATORVASTATIN
     Indication: ACUTE MYOCARDIAL INFARCTION
     Dosage: UNK
     Route: 065
  5. TELMISARTAN. [Concomitant]
     Active Substance: TELMISARTAN
     Indication: ACUTE MYOCARDIAL INFARCTION
     Dosage: UNK
     Route: 065
  6. CARVEDILOL. [Suspect]
     Active Substance: CARVEDILOL
     Indication: ACUTE MYOCARDIAL INFARCTION
     Dosage: 6.25 MG, BID
     Route: 065
  7. TICAGRELOR [Interacting]
     Active Substance: TICAGRELOR
     Dosage: 90 MG, BID
  8. CARVEDILOL. [Interacting]
     Active Substance: CARVEDILOL
     Dosage: 12.5 MG, UNK

REACTIONS (4)
  - Drug interaction [Unknown]
  - Akinesia [Unknown]
  - Sinus arrest [Unknown]
  - Bradycardia [Unknown]
